FAERS Safety Report 9555352 (Version 1)
Quarter: 2013Q3

REPORT INFORMATION
  Report Type: Spontaneous
  Country: US (occurrence: None)
  Receive Date: 20130724
  Receipt Date: 20130724
  Transmission Date: 20140515
  Serious: Yes (Other)
  Sender: FDA-Public Use
  Company Number: PHEH2013US005476

PATIENT
  Age: 63 Year
  Sex: Female

DRUGS (1)
  1. GILENYA [Suspect]
     Indication: MULTIPLE SCLEROSIS
     Route: 048
     Dates: start: 20130228

REACTIONS (8)
  - Pollakiuria [None]
  - Balance disorder [None]
  - Nasopharyngitis [None]
  - Dizziness [None]
  - Rhinorrhoea [None]
  - Cough [None]
  - Nasal congestion [None]
  - Oropharyngeal pain [None]
